FAERS Safety Report 8809029 (Version 1)
Quarter: 2012Q4

REPORT INFORMATION
  Report Type: Spontaneous
  Country: US (occurrence: None)
  Receive Date: 20120921
  Receipt Date: 20120921
  Transmission Date: 20130627
  Serious: No
  Sender: FDA-Public Use
  Company Number: None

PATIENT
  Age: 63 Year
  Sex: Male
  Weight: 116.8 kg

DRUGS (1)
  1. DABIGATRAN [Suspect]
     Route: 048
     Dates: start: 20120724, end: 20120906

REACTIONS (4)
  - Cardiac failure congestive [None]
  - Condition aggravated [None]
  - Diastolic dysfunction [None]
  - Intracardiac thrombus [None]
